FAERS Safety Report 4705106-5 (Version None)
Quarter: 2005Q3

REPORT INFORMATION
  Report Type: 
  Country: None (occurrence: None)
  Receive Date: 20050701
  Receipt Date: 20050617
  Transmission Date: 20060218
  Serious: Yes (Hospitalization)
  Sender: FDA-Public Use
  Company Number: KR-JNJFOC-20050602242

PATIENT
  Sex: Male

DRUGS (6)
  1. ULTRACET [Suspect]
     Route: 049
  2. ULTRACET [Suspect]
     Indication: PAIN MANAGEMENT
     Route: 049
  3. AIRTAL [Concomitant]
     Indication: PAIN MANAGEMENT
     Route: 049
  4. SIRDALUD [Concomitant]
     Route: 049
  5. STILLEN [Concomitant]
     Route: 049
  6. RENORMAL [Concomitant]
     Dosage: TABLET/250MG,160MG.
     Route: 049

REACTIONS (1)
  - INTERVERTEBRAL DISC OPERATION [None]
